FAERS Safety Report 7780342-2 (Version None)
Quarter: 2011Q3

REPORT INFORMATION
  Report Type: 
  Country: None (occurrence: None)
  Receive Date: 20110927
  Receipt Date: 20110914
  Transmission Date: 20111222
  Serious: Yes (Hospitalization)
  Sender: FDA-Public Use
  Company Number: DE-CELGENEUS-062-21660-11091741

PATIENT
  Age: 80 Year
  Sex: Female
  Weight: 65 kg

DRUGS (7)
  1. ABRAXANE [Suspect]
     Indication: BREAST CANCER
     Route: 065
     Dates: start: 20110505, end: 20110617
  2. VERAPAMIL [Concomitant]
     Indication: HEART RATE IRREGULAR
     Dosage: 40 MILLIGRAM
     Route: 065
  3. PANTOPRAZOLE [Concomitant]
     Indication: GASTRITIS
     Dosage: 40 MILLIGRAM
     Route: 065
  4. METFORMIN HCL [Concomitant]
     Indication: DIABETES MELLITUS
     Dosage: 1000 MILLIGRAM
     Route: 065
  5. METAMIZOLE [Concomitant]
     Indication: PAIN
     Dosage: 1500 MILLIGRAM
     Route: 065
     Dates: start: 20110601
  6. GLYBURIDE [Concomitant]
     Indication: DIABETES MELLITUS
     Dosage: 5 MILLIGRAM
     Route: 065
  7. HYDROMORPHONE HCL [Concomitant]
     Indication: PAIN
     Dosage: 4 MILLIGRAM
     Route: 065
     Dates: start: 20110401

REACTIONS (2)
  - CONFUSIONAL STATE [None]
  - DISORIENTATION [None]
